FAERS Safety Report 7296681-8 (Version None)
Quarter: 2011Q1

REPORT INFORMATION
  Report Type: 
  Country: None (occurrence: None)
  Receive Date: 20110204
  Receipt Date: 20110118
  Transmission Date: 20110831
  Serious: Yes (Hospitalization)
  Sender: FDA-Public Use
  Company Number: THQ2011A00243

PATIENT
  Age: 6 Decade
  Sex: Male

DRUGS (2)
  1. ACTOPLUS MET [Suspect]
     Indication: DIABETES MELLITUS
     Dosage: (PIOGLITAZONE HYDROCHLORIDE 15 MG/METFORMIN HYDROCHLORIDE 850 MG, 1 IN1  D) PER ORAL; PER ORAL
     Route: 048
     Dates: start: 20110101, end: 20110101
  2. ACTOPLUS MET [Suspect]
     Indication: DIABETES MELLITUS
     Dosage: (PIOGLITAZONE HYDROCHLORIDE 15 MG/METFORMIN HYDROCHLORIDE 850 MG, 1 IN1  D) PER ORAL; PER ORAL
     Route: 048
     Dates: start: 20110101

REACTIONS (1)
  - BENIGN PROSTATIC HYPERPLASIA [None]
